FAERS Safety Report 18734254 (Version 4)
Quarter: 2022Q3

REPORT INFORMATION
  Report Type: Report from Study
  Country: None (occurrence: CA)
  Receive Date: 20210113
  Receipt Date: 20220913
  Transmission Date: 20221027
  Serious: Yes (Other)
  Sender: FDA-Public Use
  Company Number: CA-AKCEA THERAPEUTICS-2020IS001570

PATIENT
  Age: 87 Year
  Sex: Female

DRUGS (7)
  1. TEGSEDI [Suspect]
     Active Substance: INOTERSEN SODIUM
     Indication: Hereditary neuropathic amyloidosis
     Route: 058
     Dates: start: 20190930
  2. DEVICE [Suspect]
     Active Substance: DEVICE
  3. TEGSEDI [Suspect]
     Active Substance: INOTERSEN SODIUM
     Route: 058
     Dates: start: 20200717
  4. RETINOL [Concomitant]
     Active Substance: RETINOL
     Route: 048
     Dates: start: 20190920
  5. LYRICA [Concomitant]
     Active Substance: PREGABALIN
     Route: 048
  6. MELATONIN [Concomitant]
     Active Substance: MELATONIN
     Route: 048
  7. VITAMIN B12 [Concomitant]
     Active Substance: CYANOCOBALAMIN
     Route: 048

REACTIONS (8)
  - Urine albumin/creatinine ratio increased [Not Recovered/Not Resolved]
  - Glomerular filtration rate decreased [Not Recovered/Not Resolved]
  - Bladder disorder [Not Recovered/Not Resolved]
  - Culture urine positive [Not Recovered/Not Resolved]
  - Protein urine present [Not Recovered/Not Resolved]
  - Creatinine urine increased [Not Recovered/Not Resolved]
  - Glomerulonephritis [Not Recovered/Not Resolved]
  - COVID-19 [Not Recovered/Not Resolved]

NARRATIVE: CASE EVENT DATE: 20200610
